FAERS Safety Report 24589657 (Version 1)
Quarter: 2024Q4

REPORT INFORMATION
  Report Type: Spontaneous
  Country: CN (occurrence: CN)
  Receive Date: 20241107
  Receipt Date: 20241107
  Transmission Date: 20250115
  Serious: Yes (Life-Threatening)
  Sender: ELI LILLY AND COMPANY
  Company Number: CN-Merck Healthcare KGaA-2024058270

PATIENT
  Age: 61 Year
  Sex: Male

DRUGS (3)
  1. ERBITUX [Suspect]
     Active Substance: CETUXIMAB
     Indication: Oesophageal neoplasm
     Dosage: 700 MG, UNKNOWN
     Route: 041
     Dates: start: 20240919
  2. CISPLATIN [Suspect]
     Active Substance: CISPLATIN
     Indication: Oesophageal neoplasm
     Dosage: 30 MG, DAILY
     Route: 041
     Dates: start: 20240919, end: 20241020
  3. FLUOROURACIL [Suspect]
     Active Substance: FLUOROURACIL
     Indication: Oesophageal neoplasm
     Dosage: 3.25 G, DAILY
     Route: 041
     Dates: start: 20240919, end: 20240919

REACTIONS (1)
  - Granulocyte count decreased [Unknown]

NARRATIVE: CASE EVENT DATE: 20241008
